FAERS Safety Report 5778673-0 (Version None)
Quarter: 2008Q2

REPORT INFORMATION
  Report Type: 
  Country: None (occurrence: None)
  Receive Date: 20080619
  Receipt Date: 20080612
  Transmission Date: 20081010
  Serious: Yes (Hospitalization)
  Sender: FDA-Public Use
  Company Number: B0524302A

PATIENT
  Age: 71 Year
  Sex: Female

DRUGS (2)
  1. CEFUROXIME [Suspect]
     Indication: DENTAL TREATMENT
     Route: 048
  2. DIOVAN [Concomitant]
     Route: 048

REACTIONS (3)
  - BLOOD PRESSURE DECREASED [None]
  - MALAISE [None]
  - RASH [None]
